FAERS Safety Report 7216008-7 (Version None)
Quarter: 2011Q1

REPORT INFORMATION
  Report Type: 
  Country: None (occurrence: None)
  Receive Date: 20110107
  Receipt Date: 20101227
  Transmission Date: 20110831
  Serious: Yes (Hospitalization)
  Sender: FDA-Public Use
  Company Number: PHHY2010IT89013

PATIENT
  Sex: Female

DRUGS (1)
  1. PACLITAXEL [Suspect]
     Indication: BREAST CANCER
     Dosage: 100 MG, QW
     Dates: start: 20101222, end: 20101222

REACTIONS (2)
  - BRONCHOSTENOSIS [None]
  - HYPOVOLAEMIC SHOCK [None]
